FAERS Safety Report 24614073 (Version 1)
Quarter: 2024Q4

REPORT INFORMATION
  Report Type: Spontaneous
  Country: US (occurrence: US)
  Receive Date: 20241113
  Receipt Date: 20241113
  Transmission Date: 20250115
  Serious: No
  Sender: GALDERMA
  Company Number: US-GALDERMA-US2024015284

PATIENT

DRUGS (8)
  1. PROACTIV MD ADAPALENE ACNE TREATMENT [Suspect]
     Active Substance: ADAPALENE
     Indication: Skin discolouration
     Dosage: 1 DOSAGE FORM, QD
     Route: 061
     Dates: start: 20240921, end: 20240925
  2. PROACTIV CLEAR SKIN SPF 30 [Concomitant]
     Active Substance: AVOBENZONE\OCTISALATE\OCTOCRYLENE
     Indication: Skin discolouration
     Dosage: 1 DOSAGE FORM, QOD
     Route: 061
     Dates: start: 20240921, end: 20240925
  3. COSMETICS [Concomitant]
     Active Substance: COSMETICS
     Indication: Skin discolouration
     Dosage: 1 DOSAGE FORM, QOD
     Route: 061
     Dates: start: 20240921, end: 20240925
  4. Proactiv MD Ultra Gentle Cleanser [Concomitant]
     Indication: Skin discolouration
     Dosage: 1 DOSAGE FORM, QOD
     Route: 061
     Dates: start: 20240921, end: 20240925
  5. COSMETICS [Concomitant]
     Active Substance: COSMETICS
     Indication: Skin discolouration
     Dosage: 1 DOSAGE FORM, QOD
     Route: 061
     Dates: start: 20240921, end: 20240925
  6. COSMETICS [Concomitant]
     Active Substance: COSMETICS
     Indication: Skin discolouration
     Dosage: 1 DOSAGE FORM, QOD
     Route: 061
     Dates: start: 20240921, end: 20240925
  7. Proactiv Post Blemish 10% Vitamin C Serum [Concomitant]
     Indication: Skin discolouration
     Dosage: 1 DOSAGE FORM, QOD
     Route: 061
     Dates: start: 20240921, end: 20240925
  8. Proactiv Zits Happen Patches [Concomitant]
     Indication: Skin discolouration
     Dosage: 1 DOSAGE FORM, QOD
     Route: 061
     Dates: start: 20240921, end: 20240925

REACTIONS (5)
  - Skin burning sensation [Recovered/Resolved]
  - Skin hyperpigmentation [Recovered/Resolved]
  - Scab [Recovered/Resolved]
  - Chemical burn of skin [Recovered/Resolved]
  - Product use in unapproved indication [Recovered/Resolved]

NARRATIVE: CASE EVENT DATE: 20240921
